FAERS Safety Report 24312145 (Version 1)
Quarter: 2024Q3

REPORT INFORMATION
  Report Type: Spontaneous
  Country: TR (occurrence: TR)
  Receive Date: 20240912
  Receipt Date: 20240912
  Transmission Date: 20241016
  Serious: Yes (Other)
  Sender: Carnegie Pharmaceuticals
  Company Number: TR-CARNEGIE-000031

PATIENT
  Age: 7 Year
  Sex: Female

DRUGS (1)
  1. LETROZOLE [Suspect]
     Active Substance: LETROZOLE
     Indication: Precocious puberty
     Route: 065

REACTIONS (2)
  - Tenosynovitis [Recovered/Resolved]
  - Arthritis [Recovered/Resolved]
